FAERS Safety Report 9239048 (Version 2)
Quarter: 2013Q3

REPORT INFORMATION
  Report Type: Spontaneous
  Country: BR (occurrence: BR)
  Receive Date: 20130418
  Receipt Date: 20130828
  Transmission Date: 20140515
  Serious: Yes (Other)
  Sender: FDA-Public Use
  Company Number: PHHY2013BR036779

PATIENT
  Sex: Male

DRUGS (13)
  1. APRESOLIN [Suspect]
     Indication: HYPERTENSION
     Dosage: 3 DF(25 MG), PER DAY
     Route: 048
  2. APRESOLIN [Suspect]
     Dosage: 2 DF(50 MG), PER DAY
     Route: 048
  3. ACETYLSALICYLIC ACID SANDOZ [Suspect]
     Indication: CARDIOVASCULAR DISORDER
     Dosage: 1 DF, PER DAY
     Route: 048
  4. ENALAPRIL [Suspect]
     Indication: HYPERTENSION
     Dosage: 2 DF(20 MG), PER DAY
     Route: 048
  5. PROPRANOLOL [Suspect]
     Indication: HYPERTENSION
     Dosage: 3 DF(40 MG), PER DAY
     Route: 048
  6. AMLODIPINE [Suspect]
     Indication: HYPERTENSION
     Dosage: 2 DF(5 MG), PER DAY
     Route: 048
  7. SPIRONOLACTONE [Suspect]
     Indication: HYPERTENSION
     Dosage: 25 MG, PER DAY
  8. ATORVASTATIN [Suspect]
     Indication: BLOOD CHOLESTEROL INCREASED
     Dosage: 1 DF(20 MG), PER DAY
     Route: 048
  9. ALLOPURINOL [Suspect]
     Indication: RENAL DISORDER
     Dosage: 100 MG, PER DAY
     Route: 048
  10. CALCIUM CARBONATE [Suspect]
     Indication: OSTEOARTHRITIS
     Dosage: 2 DF, PER DAY
     Route: 048
  11. MONOCORDIL [Suspect]
     Indication: CARDIOVASCULAR DISORDER
     Dosage: 2 DF(40 MG), PER DAY
     Route: 048
  12. INSULIN [Suspect]
     Indication: DIABETES MELLITUS
     Dosage: 4 U, (2 U. IN THE MORNING, 2 U. BEFORE LUNCH)
     Route: 030
  13. NPH-INSULIN [Suspect]
     Indication: DIABETES MELLITUS
     Dosage: 26 U, (18 U. IN THE MORNING AND 8 U. AT NIGHT)
     Route: 030

REACTIONS (9)
  - Prostatomegaly [Recovering/Resolving]
  - Renal disorder [Recovering/Resolving]
  - Diabetes mellitus [Recovering/Resolving]
  - Osteoarthritis [Recovering/Resolving]
  - Arthropathy [Recovering/Resolving]
  - Dizziness [Not Recovered/Not Resolved]
  - Chest pain [Not Recovered/Not Resolved]
  - Hypertension [Recovering/Resolving]
  - Fatigue [Not Recovered/Not Resolved]
